FAERS Safety Report 6765970-5 (Version None)
Quarter: 2010Q2

REPORT INFORMATION
  Report Type: 
  Country: None (occurrence: None)
  Receive Date: 20100611
  Receipt Date: 20100602
  Transmission Date: 20101027
  Serious: Yes (Other)
  Sender: FDA-Public Use
  Company Number: JP-SANOFI-AVENTIS-F01200900830

PATIENT
  Age: 88 Year
  Sex: Female
  Weight: 43 kg

DRUGS (5)
  1. CLOPIDOGREL BISULFATE [Suspect]
     Route: 048
     Dates: start: 20090328, end: 20090410
  2. ASPIRIN [Suspect]
     Indication: ANTIPLATELET THERAPY
     Route: 048
     Dates: start: 20081101
  3. PANALDINE [Concomitant]
     Route: 048
     Dates: start: 20081101, end: 20090328
  4. ARGATROBAN [Concomitant]
     Route: 041
     Dates: start: 20090328, end: 20090329
  5. ARGATROBAN [Concomitant]
     Route: 041
     Dates: start: 20090330, end: 20090404

REACTIONS (2)
  - RECTAL ULCER [None]
  - RECTAL ULCER HAEMORRHAGE [None]
